FAERS Safety Report 15309565 (Version 4)
Quarter: 2025Q3

REPORT INFORMATION
  Report Type: Spontaneous
  Country: EU (occurrence: EU)
  Receive Date: 20180823
  Receipt Date: 20250725
  Transmission Date: 20251021
  Serious: Yes (Other)
  Sender: AUROBINDO
  Company Number: EU-AUROBINDO-AUR-APL-2018-042719

PATIENT
  Age: 62 Year
  Sex: Male

DRUGS (3)
  1. CARBOPLATIN [Suspect]
     Active Substance: CARBOPLATIN
     Indication: Product used for unknown indication
     Route: 065
  2. PEMETREXED [Suspect]
     Active Substance: PEMETREXED
     Indication: Product used for unknown indication
     Route: 065
  3. GEFITINIB [Suspect]
     Active Substance: GEFITINIB
     Indication: Product used for unknown indication
     Route: 048

REACTIONS (2)
  - Drug resistance [Unknown]
  - Disease progression [Unknown]
